FAERS Safety Report 12763578 (Version 4)
Quarter: 2016Q4

REPORT INFORMATION
  Report Type: Spontaneous
  Country: JP (occurrence: JP)
  Receive Date: 20160920
  Receipt Date: 20161111
  Transmission Date: 20170207
  Serious: Yes (Hospitalization, Other)
  Sender: FDA-Public Use
  Company Number: JP-009507513-1609JPN008612

PATIENT
  Age: 34 Year
  Sex: Female
  Weight: 46 kg

DRUGS (4)
  1. CLEAMINE A [Suspect]
     Active Substance: CAFFEINE\ERGOTAMINE TARTRATE\PROPYPHENAZONE
     Indication: HEADACHE
     Dosage: ONE TAB TIMES OF SINGLE USE AT PAIN HEAD
     Route: 048
     Dates: start: 20160824, end: 201609
  2. CLEAMINE A [Suspect]
     Active Substance: CAFFEINE\ERGOTAMINE TARTRATE\PROPYPHENAZONE
     Dosage: UNKNOWN
     Route: 048
     Dates: start: 201609, end: 201609
  3. MARVELON [Suspect]
     Active Substance: DESOGESTREL\ETHINYL ESTRADIOL
     Indication: CONTRACEPTION
     Dosage: 1 DF, QD
     Route: 048
  4. LOXOPROFEN [Suspect]
     Active Substance: LOXOPROFEN
     Indication: HEADACHE
     Dosage: ONE TAB TIMES OF SINGLE USE AT PAIN HEAD
     Route: 048
     Dates: start: 20160824, end: 201609

REACTIONS (12)
  - Abdominal pain [Recovered/Resolved]
  - Pleural effusion [Recovered/Resolved]
  - Cholecystitis [Not Recovered/Not Resolved]
  - Headache [Unknown]
  - Hepatic function abnormal [Unknown]
  - Blood potassium decreased [Unknown]
  - Hepatomegaly [Not Recovered/Not Resolved]
  - Migraine [Unknown]
  - Oedema [Recovered/Resolved]
  - Hyperventilation [Unknown]
  - Ascites [Recovered/Resolved]
  - White blood cell count increased [Recovered/Resolved]

NARRATIVE: CASE EVENT DATE: 20160824
